FAERS Safety Report 20013693 (Version 1)
Quarter: 2021Q4

REPORT INFORMATION
  Report Type: Spontaneous
  Country: US (occurrence: US)
  Receive Date: 20211029
  Receipt Date: 20211029
  Transmission Date: 20220303
  Serious: Yes (Other)
  Sender: FDA-Public Use
  Company Number: 2021A785735

PATIENT
  Age: 68 Year
  Sex: Male
  Weight: 92.9 kg

DRUGS (5)
  1. FASENRA [Suspect]
     Active Substance: BENRALIZUMAB
     Route: 058
  2. DUPIXENT [Suspect]
     Active Substance: DUPILUMAB
     Indication: Asthma
     Dosage: 150, SOLUTION
     Route: 058
     Dates: start: 20191223
  3. DUPIXENT [Suspect]
     Active Substance: DUPILUMAB
     Indication: Asthma
     Dosage: 150, SOLUTION
     Route: 058
     Dates: start: 20191223
  4. DUPIXENT [Suspect]
     Active Substance: DUPILUMAB
     Indication: Asthma
     Dosage: 150, SOLUTION
     Route: 058
     Dates: start: 20191223
  5. JANSSEN COVID-19 VACCINE [Suspect]
     Active Substance: AD26.COV2.S
     Indication: COVID-19 immunisation
     Route: 065

REACTIONS (6)
  - Swollen tongue [Unknown]
  - Lip swelling [Unknown]
  - Eye swelling [Unknown]
  - Dyspnoea [Unknown]
  - Hypersensitivity [Unknown]
  - Product use issue [Unknown]

NARRATIVE: CASE EVENT DATE: 20191223
